FAERS Safety Report 14679135 (Version 2)
Quarter: 2018Q2

REPORT INFORMATION
  Report Type: Report from Study
  Country: MX (occurrence: MX)
  Receive Date: 20180326
  Receipt Date: 20180405
  Transmission Date: 20180711
  Serious: No
  Sender: FDA-Public Use
  Company Number: PHHY2018MX051605

PATIENT
  Sex: Female
  Weight: 64 kg

DRUGS (2)
  1. CO-DIOVAN [Suspect]
     Active Substance: HYDROCHLOROTHIAZIDE\VALSARTAN
     Indication: HYPERTENSION
     Dosage: 1 DF (12.5 MG HYDROCHLOROTHIAZIDE, 160 MG VALSARTAN), QD
     Route: 048
  2. LOGIMAT [Concomitant]
     Indication: HYPERTENSION
     Dosage: 1 DF, QN (APPROXIMATELY 10 YEARS AGO)
     Route: 048

REACTIONS (2)
  - Depression [Recovered/Resolved]
  - Drug ineffective [Unknown]
